FAERS Safety Report 18954815 (Version 3)
Quarter: 2021Q3

REPORT INFORMATION
  Report Type: Spontaneous
  Country: US (occurrence: US)
  Receive Date: 20210301
  Receipt Date: 20210929
  Transmission Date: 20211014
  Serious: Yes (Hospitalization)
  Sender: FDA-Public Use
  Company Number: US-PFIZER INC-2019413164

PATIENT
  Age: 74 Year
  Sex: Female
  Weight: 56.69 kg

DRUGS (3)
  1. XANAX [Suspect]
     Active Substance: ALPRAZOLAM
     Indication: PANIC ATTACK
     Dosage: 2 MG, 4X/DAY
     Dates: start: 1974
  2. XANAX [Suspect]
     Active Substance: ALPRAZOLAM
     Indication: NERVOUS SYSTEM DISORDER
  3. XANAX [Suspect]
     Active Substance: ALPRAZOLAM
     Indication: HYPERTENSION

REACTIONS (3)
  - Blood pressure decreased [Unknown]
  - Therapeutic response unexpected [Unknown]
  - Lower limb fracture [Not Recovered/Not Resolved]
